FAERS Safety Report 7811084-2 (Version None)
Quarter: 2011Q4

REPORT INFORMATION
  Report Type: 
  Country: None (occurrence: None)
  Receive Date: 20111013
  Receipt Date: 20111004
  Transmission Date: 20120403
  Serious: Yes (Hospitalization)
  Sender: FDA-Public Use
  Company Number: US-US-EMD SERONO, INC.-7080476

PATIENT
  Sex: Male
  Weight: 84 kg

DRUGS (3)
  1. PERCOCET [Concomitant]
     Indication: BACK PAIN
     Dosage: 5/325
     Dates: start: 20090501
  2. AMBIEN [Concomitant]
     Indication: INSOMNIA
  3. REBIF [Suspect]
     Indication: MULTIPLE SCLEROSIS
     Dates: start: 20090714

REACTIONS (3)
  - PNEUMONITIS [None]
  - ASTHENIA [None]
  - ATELECTASIS [None]
